FAERS Safety Report 19910197 (Version 1)
Quarter: 2021Q4

REPORT INFORMATION
  Report Type: Spontaneous
  Country: IT (occurrence: IT)
  Receive Date: 20211003
  Receipt Date: 20211003
  Transmission Date: 20220304
  Serious: Yes (Hospitalization, Other)
  Sender: FDA-Public Use
  Company Number: IT-ABBVIE-21K-083-4102508-00

PATIENT
  Age: 7 Month
  Sex: Male
  Weight: 10 kg

DRUGS (2)
  1. VALPROIC ACID [Suspect]
     Active Substance: VALPROIC ACID
     Indication: Epilepsy
     Route: 048
     Dates: start: 20180728, end: 20180813
  2. NITRAZEPAM [Concomitant]
     Active Substance: NITRAZEPAM
     Indication: Product used for unknown indication

REACTIONS (2)
  - Clonus [Unknown]
  - Seizure [Unknown]

NARRATIVE: CASE EVENT DATE: 20180813
